FAERS Safety Report 15237436 (Version 2)
Quarter: 2018Q3

REPORT INFORMATION
  Report Type: Spontaneous
  Country: US (occurrence: US)
  Receive Date: 20180803
  Receipt Date: 20180917
  Transmission Date: 20181010
  Serious: No
  Sender: FDA-Public Use
  Company Number: US-ASTRAZENECA-2018SE88570

PATIENT
  Age: 960 Month
  Sex: Male
  Weight: 99.8 kg

DRUGS (4)
  1. BEVESPI AEROSPHERE [Suspect]
     Active Substance: FORMOTEROL FUMARATE\GLYCOPYRROLATE
     Indication: PROPHYLAXIS
     Dosage: 9MCG/4.8MCG 2 INHALATIONS, TWICE A DAY
     Route: 055
     Dates: start: 2017
  2. BEVESPI AEROSPHERE [Suspect]
     Active Substance: FORMOTEROL FUMARATE\GLYCOPYRROLATE
     Indication: CHRONIC OBSTRUCTIVE PULMONARY DISEASE
     Dosage: 9MCG/4.8MCG 2 INHALATIONS, TWICE A DAY
     Route: 055
     Dates: start: 2017
  3. MONTELUKAST [Concomitant]
     Active Substance: MONTELUKAST SODIUM
     Route: 065
  4. ALBUTEROL. [Concomitant]
     Active Substance: ALBUTEROL
     Indication: INHALATION THERAPY

REACTIONS (11)
  - Ear pain [Not Recovered/Not Resolved]
  - Oropharyngeal pain [Recovered/Resolved]
  - Asthma [Unknown]
  - Dyspnoea [Unknown]
  - Tonsillar inflammation [Unknown]
  - Tonsillitis [Unknown]
  - Intentional product misuse [Unknown]
  - Oropharyngeal pain [Not Recovered/Not Resolved]
  - Soft tissue disorder [Unknown]
  - Drug dependence [Unknown]
  - Wrong technique in device usage process [Unknown]

NARRATIVE: CASE EVENT DATE: 201804
